FAERS Safety Report 6337708-7 (Version None)
Quarter: 2009Q3

REPORT INFORMATION
  Report Type: 
  Country: None (occurrence: None)
  Receive Date: 20090902
  Receipt Date: 20090818
  Transmission Date: 20100115
  Serious: Yes (Death, Hospitalization)
  Sender: FDA-Public Use
  Company Number: ES-BRISTOL-MYERS SQUIBB COMPANY-14746770

PATIENT
  Age: 70 Year
  Sex: Female
  Weight: 57 kg

DRUGS (12)
  1. CETUXIMAB [Suspect]
     Indication: LUNG NEOPLASM MALIGNANT
     Dosage: ON DAY 1,8,15 OF CYCLE INTERRUPTED ON 25JUN09 DURATION : 7 DAYS
     Route: 042
     Dates: start: 20090619
  2. CISPLATIN [Suspect]
     Indication: LUNG NEOPLASM MALIGNANT
     Dosage: ON DAY 1 OF CYCLE
     Route: 042
     Dates: start: 20090619
  3. PEMETREXED DISODIUM [Suspect]
     Indication: LUNG NEOPLASM MALIGNANT
     Dosage: ON DAY 1 OF CYCLE
     Route: 042
     Dates: start: 20090619
  4. OPTOVITE B12 [Concomitant]
     Dates: start: 20090611
  5. MS CONTIN [Concomitant]
     Indication: PAIN
     Dates: start: 20090619
  6. FORTECORTIN [Concomitant]
     Indication: NAUSEA
     Dates: start: 20090619
  7. FLUOXETINE [Concomitant]
     Indication: DEPRESSION
     Dates: start: 20090619
  8. EMPORTAL [Concomitant]
     Indication: PROPHYLAXIS
     Dates: start: 20090619
  9. OMEPRAZOLE [Concomitant]
     Indication: PROPHYLAXIS
     Dates: start: 20090619
  10. FOLI DOCE [Concomitant]
     Dates: start: 20090611
  11. NOLOTIL [Concomitant]
  12. FLAGYL [Concomitant]

REACTIONS (1)
  - LARGE INTESTINE PERFORATION [None]
